FAERS Safety Report 4448820-1 (Version None)
Quarter: 2004Q3

REPORT INFORMATION
  Report Type: 
  Country: None (occurrence: None)
  Receive Date: 20040909
  Receipt Date: 20040824
  Transmission Date: 20050211
  Serious: Yes (Hospitalization)
  Sender: FDA-Public Use
  Company Number: 2004-BP-07283AU

PATIENT
  Age: 82 Year
  Sex: Female

DRUGS (6)
  1. CATAPRES [Suspect]
     Indication: ESSENTIAL HYPERTENSION
     Dosage: 200 MCG (200 MCG, 200 MCG DAILY)
     Dates: end: 20030529
  2. MODURETIC 5-50 [Suspect]
     Indication: ESSENTIAL HYPERTENSION
     Dates: end: 20030529
  3. PLAVIX [Concomitant]
  4. DIAMICRON (GLICLAZIDE) [Concomitant]
  5. ASTRIX (ACETYLSALICYLIC ACID) [Concomitant]
  6. ZOCOR [Concomitant]

REACTIONS (4)
  - BLOOD PRESSURE INADEQUATELY CONTROLLED [None]
  - FALL [None]
  - LOSS OF CONSCIOUSNESS [None]
  - MOBILITY DECREASED [None]
